FAERS Safety Report 8013640-8 (Version None)
Quarter: 2011Q4

REPORT INFORMATION
  Report Type: 
  Country: None (occurrence: None)
  Receive Date: 20111229
  Receipt Date: 20111228
  Transmission Date: 20120403
  Serious: Yes (Other)
  Sender: FDA-Public Use
  Company Number: US-PFIZER INC-2011228804

PATIENT
  Sex: Female

DRUGS (2)
  1. IBUPROFEN [Suspect]
     Route: 048
  2. USTEKINUMAB [Suspect]
     Indication: PSORIATIC ARTHROPATHY
     Route: 058

REACTIONS (3)
  - GASTROOESOPHAGEAL REFLUX DISEASE [None]
  - GASTRITIS EROSIVE [None]
  - INFECTION [None]
